FAERS Safety Report 5245362-0 (Version None)
Quarter: 2007Q1

REPORT INFORMATION
  Report Type: 
  Country: None (occurrence: None)
  Receive Date: 20070223
  Receipt Date: 20070215
  Transmission Date: 20070707
  Serious: Yes (Life-Threatening, Other)
  Sender: FDA-Public Use
  Company Number: HQWYE156120FEB07

PATIENT
  Sex: Female
  Weight: 60 kg

DRUGS (8)
  1. MYLOTARG [Suspect]
     Indication: ACUTE MYELOID LEUKAEMIA RECURRENT
     Route: 041
     Dates: start: 20061120, end: 20061120
  2. MYLOTARG [Suspect]
     Route: 041
     Dates: start: 20061212, end: 20061212
  3. FOY [Concomitant]
     Dosage: 2.5 G DAILY
     Route: 041
     Dates: start: 20061119, end: 20061127
  4. FOY [Concomitant]
     Dosage: 2.5 G DAILY
     Route: 041
     Dates: start: 20061213
  5. VANCOMYCIN HYDROCHLORIDE [Concomitant]
     Dosage: 2 G DAILY
     Route: 041
     Dates: start: 20061129, end: 20061130
  6. VANCOMYCIN HYDROCHLORIDE [Concomitant]
     Dosage: 3 G DAILY
     Route: 041
     Dates: start: 20061201
  7. MEROPEN [Concomitant]
     Dosage: 2 G DAILY
     Route: 041
     Dates: start: 20061119, end: 20061127
  8. OMEGACIN [Concomitant]
     Dosage: 1.2 G DAILY
     Route: 041
     Dates: start: 20061127

REACTIONS (5)
  - CHILLS [None]
  - DISSEMINATED INTRAVASCULAR COAGULATION [None]
  - HYPOXIA [None]
  - NEUTROPHIL COUNT DECREASED [None]
  - PYREXIA [None]
